FAERS Safety Report 8536923-1 (Version None)
Quarter: 2012Q3

REPORT INFORMATION
  Report Type: 
  Country: None (occurrence: None)
  Receive Date: 20120725
  Receipt Date: 20120720
  Transmission Date: 20120928
  Serious: Yes (Death, Hospitalization)
  Sender: FDA-Public Use
  Company Number: DK-TEVA-343125ISR

PATIENT
  Sex: Male
  Weight: 71 kg

DRUGS (7)
  1. METHOTREXATE [Suspect]
     Indication: RHEUMATOID ARTHRITIS
     Route: 048
     Dates: start: 20020404
  2. ACTEMRA [Suspect]
     Indication: RHEUMATOID ARTHRITIS
     Route: 042
     Dates: start: 20100827, end: 20120223
  3. ACTEMRA [Suspect]
     Dosage: DOSE: 600MG
     Dates: start: 20120223
  4. ACTEMRA [Suspect]
     Dosage: DOSE: 640MG
     Dates: start: 20111130
  5. ACTEMRA [Suspect]
     Dosage: DOSE: 576MG
     Dates: start: 20120111
  6. PREDNISOLONE [Suspect]
     Indication: RHEUMATOID ARTHRITIS
     Dosage: 7.5 MILLIGRAM;
     Route: 048
     Dates: start: 20020404
  7. ACTEMRA [Suspect]
     Dosage: DOSE: 656 MG
     Dates: start: 20111103

REACTIONS (6)
  - STAPHYLOCOCCAL SEPSIS [None]
  - CARDIAC FAILURE [None]
  - PLEURAL EFFUSION [None]
  - PNEUMONIA [None]
  - ACUTE MYOCARDIAL INFARCTION [None]
  - DISSEMINATED INTRAVASCULAR COAGULATION [None]
